FAERS Safety Report 21053004 (Version 3)
Quarter: 2022Q4

REPORT INFORMATION
  Report Type: Other
  Country: US (occurrence: None)
  Receive Date: 20220707
  Receipt Date: 20221026
  Transmission Date: 20230112
  Serious: Yes (Other)
  Sender: FDA-Public Use
  Company Number: US-ROCHE-3131504

PATIENT
  Age: 63 Year
  Sex: Female

DRUGS (1)
  1. XELODA [Suspect]
     Active Substance: CAPECITABINE
     Indication: Neoplasm malignant
     Dosage: TAKE 3 TABLETS BY MOUTH TWICE A DAY AFTER MEALS FOR 14 DAYS, THEN HOLD FOR 7 DAYS. REPEAT EVERY 2?TA
     Route: 048

REACTIONS (2)
  - Retinal detachment [Unknown]
  - Malaise [Unknown]
